FAERS Safety Report 7885576-4 (Version None)
Quarter: 2011Q4

REPORT INFORMATION
  Report Type: 
  Country: None (occurrence: None)
  Receive Date: 20111102
  Receipt Date: 20110627
  Transmission Date: 20120403
  Serious: No
  Sender: FDA-Public Use
  Company Number: US-AMGEN-USASP2011032713

PATIENT
  Age: 53 Year
  Sex: Female
  Weight: 225 kg

DRUGS (6)
  1. IBUPROFEN [Concomitant]
     Dosage: 200 MG, UNK
  2. VIT D [Concomitant]
     Dosage: UNK
  3. VIT C [Concomitant]
     Dosage: 100 MG, UNK
  4. BUPROPION HCL [Concomitant]
     Dosage: 75 MG, UNK
     Route: 048
  5. CALCIUM 500+D [Concomitant]
     Dosage: UNK
  6. ENBREL [Suspect]
     Indication: PRODUCT USED FOR UNKNOWN INDICATION
     Dosage: 50 MG, 2 TIMES/WK
     Route: 058

REACTIONS (1)
  - AMENORRHOEA [None]
